FAERS Safety Report 12464937 (Version 2)
Quarter: 2016Q2

REPORT INFORMATION
  Report Type: Spontaneous
  Country: BR (occurrence: BR)
  Receive Date: 20160614
  Receipt Date: 20160623
  Transmission Date: 20160815
  Serious: Yes (Other)
  Sender: FDA-Public Use
  Company Number: BR-PFIZER INC-2016253152

PATIENT
  Age: 61 Year
  Sex: Female

DRUGS (9)
  1. LACTULOSE. [Concomitant]
     Active Substance: LACTULOSE
  2. LOSARTAN. [Concomitant]
     Active Substance: LOSARTAN
     Indication: BLOOD PRESSURE ABNORMAL
     Dosage: UNK
     Dates: start: 2003
  3. AROMASIN [Suspect]
     Active Substance: EXEMESTANE
     Indication: BREAST CANCER RECURRENT
     Dosage: 25 MG, DAILY
     Route: 048
     Dates: start: 201601
  4. DEXAMETHASONE. [Concomitant]
     Active Substance: DEXAMETHASONE
  5. COMPLEX B /06817001/ [Concomitant]
  6. CODEIN [Concomitant]
     Active Substance: CODEINE
  7. FUROSEMIDE. [Concomitant]
     Active Substance: FUROSEMIDE
  8. IBUPROFEN. [Concomitant]
     Active Substance: IBUPROFEN
  9. PARACETAMOL [Concomitant]
     Active Substance: ACETAMINOPHEN

REACTIONS (4)
  - Nausea [Unknown]
  - Headache [Not Recovered/Not Resolved]
  - Torticollis [Not Recovered/Not Resolved]
  - Feeding disorder [Not Recovered/Not Resolved]

NARRATIVE: CASE EVENT DATE: 201603
